FAERS Safety Report 4928652-8 (Version None)
Quarter: 2006Q1

REPORT INFORMATION
  Report Type: 
  Country: None (occurrence: None)
  Receive Date: 20060227
  Receipt Date: 20060227
  Transmission Date: 20060701
  Serious: Yes (Hospitalization)
  Sender: FDA-Public Use
  Company Number: None

PATIENT
  Age: 77 Year
  Sex: Female

DRUGS (4)
  1. LISINOPRIL [Suspect]
     Indication: HYPERTENSION
     Dosage: 10MG  DAILY  PO
     Route: 048
     Dates: start: 20050131, end: 20050201
  2. TRIAMTERENE AND HYDROCHLOROTHIAZIDE [Concomitant]
  3. NAPROXEN SODIUM [Concomitant]
  4. HYDROCODONE/ACETOMINOPHEN [Concomitant]

REACTIONS (2)
  - DYSPNOEA [None]
  - SWELLING FACE [None]
